FAERS Safety Report 9997876 (Version 1)
Quarter: 2014Q1

REPORT INFORMATION
  Report Type: Spontaneous
  Country: FR (occurrence: FR)
  Receive Date: 20140311
  Receipt Date: 20140311
  Transmission Date: 20141002
  Serious: Yes (Hospitalization)
  Sender: FDA-Public Use
  Company Number: FR-PFIZER INC-2014064190

PATIENT
  Age: 76 Year
  Sex: Male

DRUGS (11)
  1. TRIFLUCAN [Suspect]
     Dosage: 50 MG, 1X/DAY
     Route: 048
     Dates: start: 20131210, end: 20131216
  2. BACTRIM FORTE [Suspect]
     Indication: URINARY TRACT INFECTION
     Dosage: 1 DF, 1X/DAY
     Route: 048
     Dates: start: 20131202, end: 20131212
  3. ZOPHREN [Suspect]
     Dosage: 8 MG, 2X/DAY
     Route: 048
     Dates: start: 20131205, end: 20131216
  4. ALPRAZOLAM MYLAN [Suspect]
     Dosage: 0.125 MG, 2X/DAY
     Route: 048
     Dates: start: 20131129, end: 20131222
  5. AMLODIPINE [Concomitant]
     Dosage: 5 MG, 1X/DAY
     Route: 048
  6. KARDEGIC [Concomitant]
     Dosage: 75 MG, 1X/DAY
     Route: 048
  7. TRIATEC [Concomitant]
     Dosage: 5 MG, 1X/DAY
     Route: 048
  8. EUPANTOL [Concomitant]
     Dosage: 40 MG, 1X/DAY
     Route: 048
  9. NOVORAPID [Concomitant]
     Route: 058
  10. INSULIN DETEMIR [Concomitant]
  11. LOVENOX [Concomitant]
     Dosage: 4000 IU, 1X/DAY
     Route: 058
     Dates: end: 20140105

REACTIONS (1)
  - Drug eruption [Recovered/Resolved]
